FAERS Safety Report 21975316 (Version 1)
Quarter: 2023Q1

REPORT INFORMATION
  Report Type: Spontaneous
  Country: US (occurrence: US)
  Receive Date: 20230210
  Receipt Date: 20230210
  Transmission Date: 20230418
  Serious: No
  Sender: FDA-Public Use
  Company Number: US-TOLMAR, INC.-23US038634

PATIENT
  Age: 32 Year
  Sex: Male

DRUGS (2)
  1. KETOCONAZOLE [Suspect]
     Active Substance: KETOCONAZOLE
     Indication: Alopecia
     Dosage: UNK
     Route: 003
     Dates: start: 202203, end: 2022
  2. FINASTERIDE [Suspect]
     Active Substance: FINASTERIDE
     Indication: Alopecia
     Route: 048

REACTIONS (3)
  - Off label use [Not Recovered/Not Resolved]
  - Urticaria [Unknown]
  - Rash pruritic [Unknown]

NARRATIVE: CASE EVENT DATE: 20220301
